FAERS Safety Report 8173119 (Version 5)
Quarter: 2013Q3

REPORT INFORMATION
  Report Type: Report from Study
  Country: GB (occurrence: GB)
  Receive Date: 20111007
  Receipt Date: 20130709
  Transmission Date: 20140515
  Serious: Yes (Hospitalization)
  Sender: FDA-Public Use
  Company Number: GB-ABBOTT-11P-167-0858359-00

PATIENT
  Age: 65 Year
  Sex: Male
  Weight: 84 kg

DRUGS (5)
  1. HUMIRA [Suspect]
     Indication: PSORIASIS
     Route: 058
     Dates: start: 200809
  2. HUMIRA [Suspect]
     Route: 058
     Dates: start: 20100311, end: 20110819
  3. HUMIRA [Suspect]
     Route: 058
     Dates: start: 20110823
  4. RAMIPRIL [Concomitant]
     Indication: HYPERTENSION
  5. AMLODIPINE [Concomitant]
     Indication: HYPERTENSION

REACTIONS (2)
  - Pulmonary embolism [Recovered/Resolved]
  - Atelectasis [Recovered/Resolved]
